FAERS Safety Report 11404081 (Version 1)
Quarter: 2015Q3

REPORT INFORMATION
  Report Type: Spontaneous
  Country: US (occurrence: None)
  Receive Date: 20150820
  Receipt Date: 20150820
  Transmission Date: 20151125
  Serious: No
  Sender: FDA-Public Use
  Company Number: None

PATIENT
  Age: 68 Year
  Sex: Male

DRUGS (4)
  1. PIROXICAM. [Concomitant]
     Active Substance: PIROXICAM
  2. TASIGNA [Suspect]
     Active Substance: NILOTINIB
     Indication: NEOPLASM MALIGNANT
     Dosage: 200MG/400MG QOAM/QOPM PO
     Route: 048
     Dates: start: 20150210
  3. ALLOPURINOL. [Concomitant]
     Active Substance: ALLOPURINOL
  4. VOTRIENT [Concomitant]
     Active Substance: PAZOPANIB HYDROCHLORIDE

REACTIONS (2)
  - Stomatitis [None]
  - Oral pain [None]

NARRATIVE: CASE EVENT DATE: 20150818
